FAERS Safety Report 15786272 (Version 1)
Quarter: 2019Q1

REPORT INFORMATION
  Report Type: Spontaneous
  Country: US (occurrence: US)
  Receive Date: 20190103
  Receipt Date: 20190103
  Transmission Date: 20190417
  Serious: Yes (Hospitalization)
  Sender: FDA-Public Use
  Company Number: None

PATIENT
  Age: 27 Year
  Sex: Female
  Weight: 54.43 kg

DRUGS (1)
  1. NEXPLANON [Suspect]
     Active Substance: ETONOGESTREL

REACTIONS (6)
  - Hypoaesthesia [None]
  - Suicidal ideation [None]
  - Skin discolouration [None]
  - Hyperhidrosis [None]
  - Peripheral swelling [None]
  - Depressed mood [None]

NARRATIVE: CASE EVENT DATE: 20180418
